FAERS Safety Report 21781629 (Version 1)
Quarter: 2022Q4

REPORT INFORMATION
  Report Type: Spontaneous
  Country: US (occurrence: US)
  Receive Date: 20221227
  Receipt Date: 20221227
  Transmission Date: 20230113
  Serious: Yes (Death, Other)
  Sender: FDA-Public Use
  Company Number: US-TAKEDA-2022TUS100654

PATIENT
  Age: 6 Year
  Sex: Male
  Weight: 20.408 kg

DRUGS (1)
  1. NINLARO [Suspect]
     Active Substance: IXAZOMIB CITRATE
     Indication: Brain neoplasm malignant
     Dosage: 2.3 MILLIGRAM, 1/WEEK
     Route: 048
     Dates: start: 20220602, end: 202209

REACTIONS (2)
  - Brain neoplasm malignant [Fatal]
  - Off label use [Unknown]

NARRATIVE: CASE EVENT DATE: 20220602
